FAERS Safety Report 6171502-5 (Version None)
Quarter: 2009Q2

REPORT INFORMATION
  Report Type: 
  Country: None (occurrence: None)
  Receive Date: 20090429
  Receipt Date: 20090420
  Transmission Date: 20091009
  Serious: Yes (Hospitalization)
  Sender: FDA-Public Use
  Company Number: JP-ASTRAZENECA-2009SE01620

PATIENT
  Age: 82 Year
  Sex: Male

DRUGS (9)
  1. BLOPRESS [Suspect]
     Indication: HYPERTENSION
     Route: 048
     Dates: start: 20080606, end: 20090414
  2. SYOSEIRYUTO [Suspect]
     Route: 048
     Dates: end: 20090414
  3. CONIEL [Concomitant]
     Route: 048
     Dates: end: 20090414
  4. NITRODERM [Concomitant]
     Route: 062
     Dates: end: 20090414
  5. MEXITIL [Concomitant]
     Route: 048
     Dates: end: 20090414
  6. ADALAT [Concomitant]
     Route: 048
     Dates: end: 20090414
  7. HARNAL D [Concomitant]
     Route: 048
     Dates: end: 20090414
  8. ALOSENN [Concomitant]
     Route: 048
     Dates: end: 20090414
  9. HALCION [Concomitant]
     Route: 048
     Dates: end: 20090414

REACTIONS (1)
  - INTERSTITIAL LUNG DISEASE [None]
